FAERS Safety Report 24631682 (Version 1)
Quarter: 2024Q4

REPORT INFORMATION
  Report Type: Spontaneous
  Country: US (occurrence: US)
  Receive Date: 20241118
  Receipt Date: 20241118
  Transmission Date: 20250114
  Serious: Yes (Hospitalization, Other)
  Sender: GLAXOSMITHKLINE
  Company Number: US-GSK-US2024140233

PATIENT

DRUGS (1)
  1. VALACYCLOVIR [Suspect]
     Active Substance: VALACYCLOVIR HYDROCHLORIDE
     Indication: Herpes virus infection
     Dosage: 500 MG
     Dates: start: 20000101

REACTIONS (13)
  - Cotard^s syndrome [Recovered/Resolved with Sequelae]
  - Nephritis [Unknown]
  - Starvation [Unknown]
  - Cyanopsia [Recovered/Resolved]
  - Nausea [Unknown]
  - Vomiting [Unknown]
  - Urinary tract infection [Unknown]
  - Diarrhoea [Unknown]
  - Headache [Unknown]
  - Photophobia [Unknown]
  - Psychological trauma [Unknown]
  - Ear disorder [Unknown]
  - Illness [Unknown]

NARRATIVE: CASE EVENT DATE: 20160601
